FAERS Safety Report 16529985 (Version 1)
Quarter: 2019Q3

REPORT INFORMATION
  Report Type: Spontaneous
  Country: IT (occurrence: IT)
  Receive Date: 20190704
  Receipt Date: 20190704
  Transmission Date: 20191004
  Serious: Yes (Other)
  Sender: FDA-Public Use
  Company Number: IT-ASTRAZENECA-2019SE93627

PATIENT

DRUGS (1)
  1. OSIMERTINIB MESILATE [Suspect]
     Active Substance: OSIMERTINIB
     Route: 048
     Dates: end: 20190520

REACTIONS (2)
  - Malignant neoplasm progression [Unknown]
  - Drug ineffective [Unknown]
